FAERS Safety Report 7881377 (Version 2)
Quarter: 2016Q1

REPORT INFORMATION
  Report Type: Spontaneous
  Country: US (occurrence: US)
  Receive Date: 20110401
  Receipt Date: 20160219
  Transmission Date: 20160526
  Serious: Yes (Other)
  Sender: FDA-Public Use
  Company Number: US-BRISTOL-MYERS SQUIBB COMPANY-15628290

PATIENT
  Age: 28 Year
  Sex: Female

DRUGS (11)
  1. PREDNISONE. [Suspect]
     Active Substance: PREDNISONE
     Indication: BURKITT^S LYMPHOMA
     Dosage: 100 MG, UNK
     Route: 048
  2. FILGRASTIM [Suspect]
     Active Substance: FILGRASTIM
     Indication: PRODUCT USED FOR UNKNOWN INDICATION
     Route: 065
  3. DOXORUBICIN [Suspect]
     Active Substance: DOXORUBICIN
     Indication: BURKITT^S LYMPHOMA
     Dosage: 40 MG/M2, UNK
     Route: 065
  4. IFOSFAMIDE. [Suspect]
     Active Substance: IFOSFAMIDE
     Indication: BURKITT^S LYMPHOMA
     Dosage: 1500 MG/M2, UNK
     Route: 042
  5. VEPESIDE [Suspect]
     Active Substance: ETOPOSIDE
     Indication: BURKITT^S LYMPHOMA
     Dosage: 60 MG/M2, UNK
     Route: 042
  6. CYTARABINE. [Suspect]
     Active Substance: CYTARABINE
     Indication: BURKITT^S LYMPHOMA
     Dosage: 70 MG, UNK
     Route: 037
  7. RITUXIMAB [Suspect]
     Active Substance: RITUXIMAB
     Indication: BURKITT^S LYMPHOMA
     Dosage: 375 MG/M2, UNK
     Route: 065
  8. CYCLOPHOSPHAMIDE. [Suspect]
     Active Substance: CYCLOPHOSPHAMIDE
     Indication: BURKITT^S LYMPHOMA
     Dosage: 800 MG/M2, UNK
     Route: 042
  9. VINCRISTINE [Suspect]
     Active Substance: VINCRISTINE
     Indication: BURKITT^S LYMPHOMA
     Dosage: 2 MG, UNK
     Route: 065
  10. CYTARABINE. [Suspect]
     Active Substance: CYTARABINE
     Dosage: 3.2 G/M2, Q12H
     Route: 042
  11. MESNA. [Suspect]
     Active Substance: MESNA
     Indication: BURKITT^S LYMPHOMA
     Dosage: WITH A 12HOUR MESNA TAIL
     Route: 042

REACTIONS (12)
  - Vaginal haemorrhage [Unknown]
  - Amniotic fluid volume decreased [Unknown]
  - Febrile neutropenia [Unknown]
  - Postpartum haemorrhage [Unknown]
  - Stillbirth [Unknown]
  - Maternal exposure during pregnancy [Recovered/Resolved]
  - Erosive oesophagitis [Unknown]
  - Uterine contractions during pregnancy [Unknown]
  - Blood lactate dehydrogenase increased [Unknown]
  - Postpartum depression [Unknown]
  - Nausea [Unknown]
  - Vomiting [Unknown]
